FAERS Safety Report 5840452-3 (Version None)
Quarter: 2008Q3

REPORT INFORMATION
  Report Type: 
  Country: None (occurrence: None)
  Receive Date: 20080807
  Receipt Date: 20080807
  Transmission Date: 20090109
  Serious: Yes (Other)
  Sender: FDA-Public Use
  Company Number: None

PATIENT
  Age: 79 Year
  Sex: Female
  Weight: 43.5453 kg

DRUGS (2)
  1. RECLAST [Suspect]
     Indication: SENILE OSTEOPOROSIS
     Dosage: 100ML I.V. ANNUALLY IV
     Route: 042
     Dates: start: 20080604, end: 20080604
  2. RECLAST [Suspect]
     Indication: SPINAL FRACTURE

REACTIONS (4)
  - BONE PAIN [None]
  - MUSCULOSKELETAL PAIN [None]
  - MYALGIA [None]
  - PAIN IN EXTREMITY [None]
